FAERS Safety Report 16920498 (Version 2)
Quarter: 2020Q1

REPORT INFORMATION
  Report Type: Spontaneous
  Country: GB (occurrence: GB)
  Receive Date: 20191015
  Receipt Date: 20200211
  Transmission Date: 20200409
  Serious: Yes (Death, Hospitalization)
  Sender: FDA-Public Use
  Company Number: GB-MYLANLABS-2019M1096659

PATIENT
  Age: 66 Year
  Sex: Female
  Weight: 99 kg

DRUGS (9)
  1. ONDANSETRON                        /00955302/ [Concomitant]
     Active Substance: ONDANSETRON HYDROCHLORIDE
     Dosage: 8 MILLIGRAM
     Route: 042
  2. DEXAMETHASONE. [Concomitant]
     Active Substance: DEXAMETHASONE
     Dosage: 6 MILLIGRAM, QD, (FOR 3 DAYS)
  3. FLUOROURACIL. [Suspect]
     Active Substance: FLUOROURACIL
     Dosage: 800 MILLIGRAM 400MG/M2
     Route: 040
     Dates: start: 20190321, end: 20190323
  4. OXALIPLATIN. [Concomitant]
     Active Substance: OXALIPLATIN
     Dosage: 165 MILLIGRAM, (85MG/M2 165MG OVER 2 HOURS)
     Dates: start: 20190321
  5. FOLINIC ACID [Concomitant]
     Active Substance: LEUCOVORIN
     Dosage: 350 MILLIGRAM, (OVER 2 HOURS)
     Dates: start: 20190321
  6. DEXAMETHASONE. [Concomitant]
     Active Substance: DEXAMETHASONE
     Dosage: 8 MILLIGRAM
     Route: 042
  7. FLUOROURACIL. [Suspect]
     Active Substance: FLUOROURACIL
     Dosage: 5000 MILLIGRAM, (2400MG/M2 - 5000MG IV INFUSION VIA PUMP OVER 46 HOURS)
     Route: 042
     Dates: start: 20190321, end: 20190323
  8. METOCLOPRAMIDE. [Concomitant]
     Active Substance: METOCLOPRAMIDE
     Dosage: 30 MILLIGRAM, QD, (AS NECESSARY FOR 7 DAYS)
  9. FLUOROURACIL. [Suspect]
     Active Substance: FLUOROURACIL
     Indication: COLON CANCER STAGE III
     Dosage: NOT KNOWN
     Route: 051
     Dates: start: 20190323, end: 20190323

REACTIONS (10)
  - Dehydration [Not Recovered/Not Resolved]
  - Enteritis [Not Recovered/Not Resolved]
  - Death [Fatal]
  - Nausea [Not Recovered/Not Resolved]
  - Pancytopenia [Not Recovered/Not Resolved]
  - Neutropenic sepsis [Fatal]
  - Oral pain [Not Recovered/Not Resolved]
  - Vomiting [Not Recovered/Not Resolved]
  - Mucosal inflammation [Not Recovered/Not Resolved]
  - Diarrhoea [Not Recovered/Not Resolved]

NARRATIVE: CASE EVENT DATE: 20190417
